FAERS Safety Report 24693613 (Version 1)
Quarter: 2024Q4

REPORT INFORMATION
  Report Type: Spontaneous
  Country: AU (occurrence: AU)
  Receive Date: 20241204
  Receipt Date: 20241204
  Transmission Date: 20250115
  Serious: Yes (Other)
  Sender: JAZZ
  Company Number: AU-JAZZ PHARMACEUTICALS-2024-AU-022637

PATIENT
  Age: 6 Year

DRUGS (1)
  1. VYXEOS [Suspect]
     Active Substance: CYTARABINE\DAUNORUBICIN
     Indication: Product used for unknown indication

REACTIONS (2)
  - Sepsis [Unknown]
  - Product use issue [Unknown]
